FAERS Safety Report 14614736 (Version 1)
Quarter: 2018Q1

REPORT INFORMATION
  Report Type: Spontaneous
  Country: IT (occurrence: IT)
  Receive Date: 20180308
  Receipt Date: 20180308
  Transmission Date: 20180509
  Serious: Yes (Hospitalization)
  Sender: FDA-Public Use
  Company Number: IT-TEVA-2018-IT-864096

PATIENT
  Age: 85 Year
  Sex: Male

DRUGS (8)
  1. TAREG [Concomitant]
     Active Substance: VALSARTAN
  2. LANSOX [Concomitant]
     Active Substance: LANSOPRAZOLE
  3. ZYLORIC [Concomitant]
     Active Substance: ALLOPURINOL
  4. FOLIFILL [Concomitant]
  5. PRADIF [Concomitant]
     Active Substance: TAMSULOSIN HYDROCHLORIDE
  6. FUROSEMIDE. [Suspect]
     Active Substance: FUROSEMIDE
     Indication: HYPERTENSION
     Route: 048
     Dates: start: 20170101, end: 20170716
  7. XARELTO [Concomitant]
     Active Substance: RIVAROXABAN
  8. HUMALOG [Concomitant]
     Active Substance: INSULIN LISPRO

REACTIONS (2)
  - Hyponatraemia [Unknown]
  - Confusional state [Unknown]

NARRATIVE: CASE EVENT DATE: 20170716
